FAERS Safety Report 20606970 (Version 2)
Quarter: 2022Q2

REPORT INFORMATION
  Report Type: Spontaneous
  Country: CA (occurrence: CA)
  Receive Date: 20220317
  Receipt Date: 20220420
  Transmission Date: 20220721
  Serious: No
  Sender: FDA-Public Use
  Company Number: CA-PFIZER INC-2017295343

PATIENT
  Age: 49 Year
  Sex: Male

DRUGS (7)
  1. SOMAVERT [Suspect]
     Active Substance: PEGVISOMANT
     Indication: Acromegaly
     Dosage: 10 MG, 1X/DAY
     Route: 058
     Dates: start: 20170627, end: 201802
  2. SOMAVERT [Suspect]
     Active Substance: PEGVISOMANT
     Dosage: 15 MG, 1X/DAY
     Route: 058
     Dates: start: 201802
  3. SOMAVERT [Suspect]
     Active Substance: PEGVISOMANT
     Dosage: 10 MG, 1X/DAY
     Route: 058
  4. ANDROGEL [Concomitant]
     Active Substance: TESTOSTERONE
     Dosage: 7.5 G, 1X/DAY
  5. CORTEF [Concomitant]
     Active Substance: HYDROCORTISONE
     Dosage: 10 MG, 2X/DAY
     Route: 048
  6. SYNTHROID [Concomitant]
     Active Substance: LEVOTHYROXINE SODIUM
     Dosage: 0.075 MG, 1X/DAY
     Route: 048
  7. SYNTHROID [Concomitant]
     Active Substance: LEVOTHYROXINE SODIUM
     Dosage: 0.1 MG, 1X/DAY
     Route: 048

REACTIONS (8)
  - Injection site pain [Unknown]
  - Needle issue [Unknown]
  - Injection site discomfort [Unknown]
  - Incorrect dose administered [Unknown]
  - Product reconstitution quality issue [Unknown]
  - Device leakage [Unknown]
  - Blood testosterone decreased [Unknown]
  - Epinephrine decreased [Unknown]
